FAERS Safety Report 8814961 (Version 1)
Quarter: 2012Q4

REPORT INFORMATION
  Report Type: 
  Country: US (occurrence: US)
  Receive Date: 20120928
  Receipt Date: 20120928
  Transmission Date: 20130627
  Serious: Yes (Death)
  Sender: FDA-Public Use
  Company Number: US-ROXANE LABORATORIES, INC.-2012-EU-04914GD

PATIENT
  Age: 24 Year
  Sex: Male

DRUGS (3)
  1. SERTRALINE [Suspect]
     Route: 048
  2. LITHIUM [Suspect]
     Route: 048
  3. METHAMPHETAMINE [Suspect]
     Route: 048

REACTIONS (7)
  - Cardiac hypertrophy [Fatal]
  - Hyperthermia [Fatal]
  - Serotonin syndrome [Fatal]
  - Shock [Fatal]
  - Convulsion [Fatal]
  - Lethargy [Fatal]
  - Overdose [Fatal]
